FAERS Safety Report 10681045 (Version 1)
Quarter: 2014Q4

REPORT INFORMATION
  Report Type: Other
  Country: GB (occurrence: GB)
  Receive Date: 20141229
  Receipt Date: 20141229
  Transmission Date: 20150529
  Serious: Yes (Disabling)
  Sender: FDA-Public Use
  Company Number: GB-MYLANLABS-2014M1014722

PATIENT

DRUGS (3)
  1. RAMIPRIL. [Concomitant]
     Active Substance: RAMIPRIL
     Dates: start: 20141128
  2. FELODIPINE. [Suspect]
     Active Substance: FELODIPINE
     Dates: start: 20140819
  3. INDAPAMIDE. [Concomitant]
     Active Substance: INDAPAMIDE
     Dates: start: 20141205

REACTIONS (2)
  - Gingival hyperplasia [Recovering/Resolving]
  - Tooth loss [Recovering/Resolving]

NARRATIVE: CASE EVENT DATE: 20141205
